FAERS Safety Report 11038622 (Version 1)
Quarter: 2015Q2

REPORT INFORMATION
  Report Type: Spontaneous
  Country: FR (occurrence: FR)
  Receive Date: 20150416
  Receipt Date: 20150416
  Transmission Date: 20150821
  Serious: Yes (Other)
  Sender: FDA-Public Use
  Company Number: FR-GLAXOSMITHKLINE INC.-FR2015GSK047405

PATIENT
  Age: 19 Year
  Sex: Female

DRUGS (4)
  1. VOTRIENT [Suspect]
     Active Substance: PAZOPANIB HYDROCHLORIDE
     Indication: METASTASES TO LUNG
  2. VOTRIENT [Suspect]
     Active Substance: PAZOPANIB HYDROCHLORIDE
     Indication: EWING^S SARCOMA METASTATIC
     Dosage: 400 MG, 1D
     Route: 048
     Dates: start: 201409, end: 20150218
  3. TOPOTECAN [Concomitant]
     Active Substance: TOPOTECAN\TOPOTECAN HYDROCHLORIDE
     Indication: EWING^S SARCOMA METASTATIC
     Dosage: METRONOMIC
     Dates: start: 201409
  4. TOPOTECAN [Concomitant]
     Active Substance: TOPOTECAN\TOPOTECAN HYDROCHLORIDE
     Indication: METASTASES TO LUNG

REACTIONS (3)
  - Mucosal inflammation [Recovering/Resolving]
  - Gingival recession [Recovering/Resolving]
  - Periodontal disease [Recovering/Resolving]

NARRATIVE: CASE EVENT DATE: 20141231
